FAERS Safety Report 10137551 (Version 1)
Quarter: 2014Q2

REPORT INFORMATION
  Report Type: Spontaneous
  Country: US (occurrence: US)
  Receive Date: 20140429
  Receipt Date: 20140429
  Transmission Date: 20141212
  Serious: Yes (Hospitalization)
  Sender: FDA-Public Use
  Company Number: US-BAYER-2014-059733

PATIENT
  Age: 42 Year
  Sex: Female
  Weight: 85.71 kg

DRUGS (26)
  1. YAZ [Suspect]
  2. YASMIN [Suspect]
  3. PREDNISONE [Concomitant]
     Dosage: TAPERING DOSE
     Dates: start: 20061203
  4. SOLU-MEDROL [Concomitant]
     Dosage: TAPERING DOSE
     Dates: start: 20061203
  5. SOLU-CORTEF [Concomitant]
     Dosage: 25 MG, DAILY
     Route: 042
     Dates: start: 20061203, end: 20061206
  6. DILAUDID [Concomitant]
     Dosage: 2 MG, PRN EVERY 6 HOURS
     Route: 042
  7. LEVAQUIN [Concomitant]
     Dosage: 750 MG, ONCE
     Route: 042
     Dates: start: 20061203, end: 20061218
  8. NORMAL SALINE [Concomitant]
     Dosage: UNK
     Route: 042
     Dates: start: 20061203, end: 20061220
  9. NORMAL SALINE [Concomitant]
     Dosage: UNK
     Dates: start: 20061203, end: 20061206
  10. ZOFRAN [Concomitant]
     Dosage: 4 MG, PRN
     Route: 042
     Dates: start: 20061203, end: 20061220
  11. NORVASC [Concomitant]
     Dosage: 10 MG, DAILY
     Dates: start: 20061203, end: 20061212
  12. SINGULAIR [Concomitant]
     Dosage: 10 MG, DAILY
     Dates: start: 20061203, end: 20061222
  13. ADVAIR [Concomitant]
     Dosage: 500/50 1 PUFF TWICE DAILY
     Dates: start: 20061203, end: 20061222
  14. CLARINEX [DESLORATADINE] [Concomitant]
     Dosage: 10 MG, DAILY
     Dates: start: 20061204, end: 20061207
  15. CLARINEX [DESLORATADINE] [Concomitant]
     Dosage: 5 MG, DAILY
     Dates: start: 20061220, end: 20061222
  16. FLAGYL [Concomitant]
  17. INTRALIPID [Concomitant]
     Dosage: 0.0.417 ML/HR EVERY 24 HOURS
     Route: 042
     Dates: start: 20061205, end: 20061210
  18. XOPENEX [Concomitant]
     Indication: DYSPNOEA
     Dosage: 0.63 MG, UNK
     Dates: start: 20061205, end: 20061219
  19. PROCALAMINE [AMINO ACIDS NOS,GLYCEROL] [Concomitant]
     Dosage: UNK
     Route: 042
     Dates: start: 20061206, end: 20061210
  20. PCE [Concomitant]
     Dosage: 1000 MG, TID
     Dates: start: 20061212
  21. COLYTE [Concomitant]
     Dosage: 4000 MG, UNK
     Route: 048
     Dates: start: 20061212
  22. ADALAT CC [Concomitant]
     Dosage: 10 MG, EVERY 6 HOURS
     Dates: start: 20061212
  23. CLOTRIMAZOLE [Concomitant]
     Indication: FUNGAL INFECTION
     Dosage: Q 6 HOURS PRN (AS NEEDED)
     Dates: start: 20061220
  24. HYDROCODONE [Concomitant]
     Indication: PAIN
     Dosage: 5-500 EVERY 6 HOURS AS NEEDED
  25. AQUAPHOR [XIPAMIDE] [Concomitant]
     Dosage: 4 TIMES DAILY
     Route: 061
     Dates: start: 20061222
  26. LOTRIMIN [Concomitant]

REACTIONS (1)
  - Pulmonary embolism [None]
